FAERS Safety Report 9434598 (Version 1)
Quarter: 2013Q3

REPORT INFORMATION
  Report Type: Spontaneous
  Country: US (occurrence: US)
  Receive Date: 20130801
  Receipt Date: 20130801
  Transmission Date: 20140515
  Serious: No
  Sender: FDA-Public Use
  Company Number: US-PFIZER INC-2013196119

PATIENT
  Age: 68 Year
  Sex: Female
  Weight: 76.19 kg

DRUGS (13)
  1. XELJANZ [Suspect]
     Indication: RHEUMATOID ARTHRITIS
     Dosage: 5 MG, 2X/DAY (TAKE 1 TABLET BY MOUTH TWICE A DAY)
     Route: 048
     Dates: start: 20130301
  2. FUROSEMIDE [Concomitant]
     Dosage: 20 MG, UNK
  3. ISOSORBIDE MONONITRATE [Concomitant]
     Dosage: 60 MG, UNK
  4. FOLIC ACID [Concomitant]
     Dosage: UNK
  5. MELOXICAM [Concomitant]
     Dosage: 7.5 MG, UNK
  6. FLEXERIL [Concomitant]
     Dosage: 10 MG, UNK
  7. TRAZODONE [Concomitant]
     Dosage: 100 MG, UNK
  8. GABAPENTIN [Concomitant]
     Dosage: 600 MG, UNK
  9. PREDNISONE [Concomitant]
     Dosage: 5 MG, UNK
  10. CELEXA [Concomitant]
     Dosage: 40 MG, UNK
  11. AVINZA [Concomitant]
     Dosage: 60 MG, UNK
  12. OMEPRAZOLE [Concomitant]
     Dosage: 40 MG, UNK
  13. NEURONTIN [Concomitant]
     Dosage: 100 MG, UNK

REACTIONS (3)
  - Infection [Unknown]
  - Pyrexia [Unknown]
  - Fatigue [Unknown]
